FAERS Safety Report 8387273-8 (Version None)
Quarter: 2012Q2

REPORT INFORMATION
  Report Type: 
  Country: None (occurrence: None)
  Receive Date: 20120525
  Receipt Date: 20120522
  Transmission Date: 20120825
  Serious: Yes (Hospitalization)
  Sender: FDA-Public Use
  Company Number: US-ROCHE-1071551

PATIENT
  Age: 79 Year
  Sex: Female

DRUGS (2)
  1. WARFARIN SODIUM [Concomitant]
     Indication: PRODUCT USED FOR UNKNOWN INDICATION
     Route: 048
  2. XELODA [Suspect]
     Indication: COLON CANCER
     Dosage: UNKOWN
     Route: 048
     Dates: start: 20120101, end: 20120512

REACTIONS (3)
  - PLATELET COUNT DECREASED [None]
  - CARDIOVERSION [None]
  - DIARRHOEA [None]
